FAERS Safety Report 10367283 (Version 1)
Quarter: 2014Q3

REPORT INFORMATION
  Report Type: Spontaneous
  Country: US (occurrence: US)
  Receive Date: 20140807
  Receipt Date: 20140807
  Transmission Date: 20150326
  Serious: No
  Sender: FDA-Public Use
  Company Number: US-ASTRAZENECA-2014SE55445

PATIENT
  Age: 87 Year
  Sex: Female
  Weight: 96.6 kg

DRUGS (4)
  1. SLEEPING MEDICATION [Concomitant]
  2. ALLEGRA OTC [Concomitant]
     Indication: ANTIALLERGIC THERAPY
  3. ASPIRIN. [Suspect]
     Active Substance: ASPIRIN
     Indication: CARDIOVASCULAR EVENT PROPHYLAXIS
     Route: 048
     Dates: start: 201406
  4. BRILINTA [Suspect]
     Active Substance: TICAGRELOR
     Indication: STENT PLACEMENT
     Route: 048
     Dates: start: 201406

REACTIONS (3)
  - Dyspnoea [Recovering/Resolving]
  - Pruritus generalised [Unknown]
  - Off label use [Unknown]

NARRATIVE: CASE EVENT DATE: 2014
